FAERS Safety Report 5511405-X (Version None)
Quarter: 2007Q4

REPORT INFORMATION
  Report Type: 
  Country: None (occurrence: None)
  Receive Date: 20071109
  Receipt Date: 20071029
  Transmission Date: 20080405
  Serious: Yes (Disabling, Other)
  Sender: FDA-Public Use
  Company Number: RO-ROCHE-528161

PATIENT
  Age: 47 Year
  Sex: Female
  Weight: 55 kg

DRUGS (2)
  1. PEGASYS [Suspect]
     Route: 058
     Dates: start: 20060625, end: 20070525
  2. COPEGUS [Suspect]
     Dosage: THE DOSE OF RIBAVIRIN WAS DECREASED IN MARCH 2007
     Route: 048
     Dates: start: 20060625, end: 20070525

REACTIONS (5)
  - ANAEMIA [None]
  - GINGIVITIS [None]
  - HYPODONTIA [None]
  - TOOTH FRACTURE [None]
  - TOOTH INFECTION [None]
